FAERS Safety Report 17020220 (Version 2)
Quarter: 2019Q4

REPORT INFORMATION
  Report Type: Report from Study
  Country: US (occurrence: US)
  Receive Date: 20191112
  Receipt Date: 20191231
  Transmission Date: 20200122
  Serious: Yes (Hospitalization, Other)
  Sender: FDA-Public Use
  Company Number: US-ROCHE-2457143

PATIENT
  Age: 59 Year
  Sex: Female
  Weight: 92.62 kg

DRUGS (11)
  1. OCREVUS [Suspect]
     Active Substance: OCRELIZUMAB
     Route: 042
     Dates: start: 2018
  2. COLACE [Concomitant]
     Active Substance: DOCUSATE SODIUM
     Indication: CONSTIPATION
     Dosage: ONGOING: UNKNOWN
     Route: 048
  3. OCREVUS [Suspect]
     Active Substance: OCRELIZUMAB
     Dosage: NEXT DOSE: 18/JUN/2018
     Route: 042
     Dates: start: 20190118
  4. BACLOFEN. [Concomitant]
     Active Substance: BACLOFEN
     Dosage: OONGOING: UNKNOWN
     Route: 048
  5. GABAPENTIN. [Concomitant]
     Active Substance: GABAPENTIN
     Dosage: STOPPED DUE TO HALLUCINATIONS ;ONGOING: NO
     Route: 048
  6. POTASSIUM [Concomitant]
     Active Substance: POTASSIUM
     Route: 048
  7. OXYBUTIN [Concomitant]
     Active Substance: OXYBUTYNIN
     Dosage: ONGOING: UNKNOWN
     Route: 048
  8. OXYCODONE [Concomitant]
     Active Substance: OXYCODONE
     Dosage: 5MG/325MG?ONGOING: UNKNOWN
     Route: 048
  9. OCREVUS [Suspect]
     Active Substance: OCRELIZUMAB
     Indication: PRIMARY PROGRESSIVE MULTIPLE SCLEROSIS
     Dosage: PUT ON HOLD DUE TO CELLULITIS ;ONGOING: NO
     Route: 042
     Dates: start: 201810
  10. GABAPENTIN. [Concomitant]
     Active Substance: GABAPENTIN
     Dosage: ONGOING: UNKNOWN
     Route: 048
  11. CRESTOR [Concomitant]
     Active Substance: ROSUVASTATIN CALCIUM
     Indication: BLOOD CHOLESTEROL INCREASED
     Dosage: ONGOING: UNKNOWN
     Route: 048

REACTIONS (18)
  - Burning sensation [Not Recovered/Not Resolved]
  - Device related infection [Recovered/Resolved]
  - Gait inability [Not Recovered/Not Resolved]
  - Escherichia infection [Recovered/Resolved]
  - Gait disturbance [Unknown]
  - Cystitis [Recovered/Resolved]
  - Localised infection [Not Recovered/Not Resolved]
  - Decreased appetite [Recovered/Resolved]
  - Infected skin ulcer [Recovering/Resolving]
  - Malaise [Not Recovered/Not Resolved]
  - Dysstasia [Recovering/Resolving]
  - Gastritis [Recovered/Resolved]
  - Vomiting [Recovered/Resolved]
  - Asthenia [Not Recovered/Not Resolved]
  - Cellulitis [Not Recovered/Not Resolved]
  - Sepsis [Recovered/Resolved]
  - Ulcer [Recovered/Resolved]
  - Hallucination [Recovered/Resolved]

NARRATIVE: CASE EVENT DATE: 201905
